FAERS Safety Report 22367922 (Version 1)
Quarter: 2023Q2

REPORT INFORMATION
  Report Type: Spontaneous
  Country: US (occurrence: None)
  Receive Date: 20230525
  Receipt Date: 20230525
  Transmission Date: 20230721
  Serious: No
  Sender: FDA-Public Use
  Company Number: None

PATIENT
  Sex: Female

DRUGS (1)
  1. ICATIBANT ACETATE [Suspect]
     Active Substance: ICATIBANT ACETATE
     Indication: Complement deficiency disease
     Dosage: 30MG AS NEEDED SUBCUTANEOUSLY
     Route: 058
     Dates: start: 20190520

REACTIONS (5)
  - Weight decreased [None]
  - Eye swelling [None]
  - Peripheral swelling [None]
  - Peripheral swelling [None]
  - Swelling face [None]
